FAERS Safety Report 5277844-X (Version None)
Quarter: 2007Q1

REPORT INFORMATION
  Report Type: 
  Country: None (occurrence: None)
  Receive Date: 20070327
  Receipt Date: 20070315
  Transmission Date: 20070707
  Serious: Yes (Hospitalization)
  Sender: FDA-Public Use
  Company Number: ES-PFIZER INC-2007020054

PATIENT
  Age: 77 Year
  Sex: Male

DRUGS (1)
  1. VORICONAZOLE [Suspect]

REACTIONS (6)
  - DELIRIUM [None]
  - DIPLOPIA [None]
  - FLUID RETENTION [None]
  - HALLUCINATION [None]
  - HYPONATRAEMIA [None]
  - VISION BLURRED [None]
